FAERS Safety Report 6935037-1 (Version None)
Quarter: 2010Q3

REPORT INFORMATION
  Report Type: 
  Country: None (occurrence: None)
  Receive Date: 20100822
  Receipt Date: 20100810
  Transmission Date: 20110219
  Serious: Yes (Hospitalization)
  Sender: FDA-Public Use
  Company Number: PHHY2010JP52720

PATIENT
  Age: 78 Year
  Sex: Female

DRUGS (4)
  1. TEGRETOL [Suspect]
     Indication: EPILEPSY
     Dosage: 200 MG, DAILY
     Route: 048
     Dates: start: 20100624
  2. TEGRETOL [Suspect]
     Indication: COMPLEX PARTIAL SEIZURES
  3. CELECOXIB [Concomitant]
     Dosage: 200 MG, UNK
     Route: 048
  4. FAMOTIDINE [Concomitant]
     Dosage: 20 MG, UNK
     Route: 048

REACTIONS (4)
  - DYSPNOEA [None]
  - ERYTHEMA [None]
  - OEDEMA GENITAL [None]
  - OEDEMA MOUTH [None]
